FAERS Safety Report 9814376 (Version 2)
Quarter: 2014Q2

REPORT INFORMATION
  Report Type: Report from Study
  Country: CA (occurrence: CA)
  Receive Date: 20140113
  Receipt Date: 20140616
  Transmission Date: 20141212
  Serious: Yes (Death, Other)
  Sender: FDA-Public Use
  Company Number: CA-ABBVIE-14P-028-1189448-00

PATIENT
  Sex: Male

DRUGS (3)
  1. HUMIRA [Suspect]
     Indication: PSORIASIS
     Dosage: LAST DOSE: NOV 2013
     Route: 058
     Dates: start: 20130930
  2. HUMIRA [Suspect]
     Route: 058
  3. REMICADE [Suspect]
     Indication: PRODUCT USED FOR UNKNOWN INDICATION
     Dosage: RECEIVED 36 PERFUSIONS

REACTIONS (3)
  - Death [Fatal]
  - Throat cancer [Unknown]
  - Ear infection [Unknown]
